FAERS Safety Report 26194744 (Version 1)
Quarter: 2025Q4

REPORT INFORMATION
  Report Type: Spontaneous
  Country: CN (occurrence: CN)
  Receive Date: 20251224
  Receipt Date: 20251224
  Transmission Date: 20260118
  Serious: Yes (Other)
  Sender: BRACCO
  Company Number: CN-BRACCO-2025CN09017

PATIENT
  Age: 40 Year
  Sex: Male

DRUGS (1)
  1. MULTIHANCE [Suspect]
     Active Substance: GADOBENATE DIMEGLUMINE
     Indication: Magnetic resonance imaging abdominal
     Dosage: 15 ML, SINGLE
     Dates: start: 20251127, end: 20251127

REACTIONS (3)
  - Cutaneous vasculitis [Recovering/Resolving]
  - Angioedema [Recovering/Resolving]
  - Phlebitis [Recovering/Resolving]

NARRATIVE: CASE EVENT DATE: 20251129
